FAERS Safety Report 24766213 (Version 1)
Quarter: 2024Q4

REPORT INFORMATION
  Report Type: Spontaneous
  Country: FR (occurrence: FR)
  Receive Date: 20241223
  Receipt Date: 20241223
  Transmission Date: 20250115
  Serious: Yes (Other)
  Sender: BIOTEST
  Company Number: FR-BIOTEST-015004

PATIENT
  Age: 43 Year
  Sex: Male

DRUGS (1)
  1. HUMAN IMMUNOGLOBULIN G [Suspect]
     Active Substance: HUMAN IMMUNOGLOBULIN G
     Indication: Chronic inflammatory demyelinating polyradiculoneuropathy
     Dosage: TIME INTERVAL: CYCLICAL: THE INTERVALS BETWEEN IVIG COURSES RANGED FROM 4 TO 12 WEEKS, AND THE DO...
     Route: 042

REACTIONS (1)
  - Retinal artery occlusion [Unknown]
